FAERS Safety Report 13138453 (Version 2)
Quarter: 2017Q1

REPORT INFORMATION
  Report Type: Spontaneous
  Country: US (occurrence: US)
  Receive Date: 20170123
  Receipt Date: 20170330
  Transmission Date: 20170428
  Serious: Yes (Death, Other)
  Sender: FDA-Public Use
  Company Number: US-ASTELLAS-2017US002626

PATIENT
  Age: 80 Year
  Sex: Male

DRUGS (1)
  1. XTANDI [Suspect]
     Active Substance: ENZALUTAMIDE
     Indication: HORMONE-REFRACTORY PROSTATE CANCER
     Route: 065
     Dates: start: 20160911, end: 201612

REACTIONS (4)
  - Gait disturbance [Unknown]
  - General physical health deterioration [Unknown]
  - Prostate cancer [Fatal]
  - Dysstasia [Unknown]

NARRATIVE: CASE EVENT DATE: 201610
